FAERS Safety Report 9762575 (Version 1)
Quarter: 2013Q4

REPORT INFORMATION
  Report Type: Spontaneous
  Country: US (occurrence: US)
  Receive Date: 20131216
  Receipt Date: 20131216
  Transmission Date: 20140711
  Serious: No
  Sender: FDA-Public Use
  Company Number: US-BIOGENIDEC-2013BI108434

PATIENT
  Sex: Female

DRUGS (11)
  1. TECFIDERA [Suspect]
     Indication: MULTIPLE SCLEROSIS
     Route: 048
     Dates: start: 20131021
  2. ARICEPT [Concomitant]
  3. ATIVAN [Concomitant]
  4. BACLOFEN [Concomitant]
  5. BAYER ASPIRIN [Concomitant]
  6. DOCUSATE SODIUM [Concomitant]
  7. IBUPROFEN [Concomitant]
  8. LYRICA [Concomitant]
  9. NAPROXEN DR [Concomitant]
  10. PAXIL [Concomitant]
  11. TEGRETOL [Concomitant]

REACTIONS (1)
  - Nasopharyngitis [Unknown]
